FAERS Safety Report 5722964-6 (Version None)
Quarter: 2008Q2

REPORT INFORMATION
  Report Type: 
  Country: None (occurrence: None)
  Receive Date: 20080430
  Receipt Date: 20080425
  Transmission Date: 20081010
  Serious: Yes (Death)
  Sender: FDA-Public Use
  Company Number: PL-BRISTOL-MYERS SQUIBB COMPANY-14122626

PATIENT
  Age: 65 Year
  Sex: Female
  Weight: 55 kg

DRUGS (2)
  1. ABILIFY [Suspect]
     Route: 048
  2. CLOZAPINE [Suspect]

REACTIONS (2)
  - CARDIOPULMONARY FAILURE [None]
  - FOREIGN BODY ASPIRATION [None]
